FAERS Safety Report 19990797 (Version 1)
Quarter: 2021Q4

REPORT INFORMATION
  Report Type: Spontaneous
  Country: US (occurrence: US)
  Receive Date: 20211024
  Receipt Date: 20211024
  Transmission Date: 20220303
  Serious: Yes (unspecified)
  Sender: FDA-Public Use
  Company Number: None

PATIENT
  Age: 33 Year
  Sex: Female
  Weight: 56.7 kg

DRUGS (1)
  1. PARAGARD T 380A [Suspect]
     Active Substance: COPPER

REACTIONS (5)
  - Pelvic pain [None]
  - Complication of device insertion [None]
  - Device use error [None]
  - Embedded device [None]
  - Complication of device removal [None]

NARRATIVE: CASE EVENT DATE: 20211001
